FAERS Safety Report 19746867 (Version 4)
Quarter: 2021Q3

REPORT INFORMATION
  Report Type: Spontaneous
  Country: US (occurrence: US)
  Receive Date: 20210826
  Receipt Date: 20210831
  Transmission Date: 20211014
  Serious: Yes (Other)
  Sender: FDA-Public Use
  Company Number: US-GILEAD-2021-0545463

PATIENT
  Sex: Female

DRUGS (1)
  1. YESCARTA [Suspect]
     Active Substance: AXICABTAGENE CILOLEUCEL
     Indication: FOLLICULAR LYMPHOMA
     Route: 065

REACTIONS (5)
  - Neurotoxicity [Unknown]
  - Norovirus infection [Not Recovered/Not Resolved]
  - Gallbladder disorder [Unknown]
  - T-cell lymphoma [Not Recovered/Not Resolved]
  - Pancytopenia [Not Recovered/Not Resolved]
